FAERS Safety Report 10020860 (Version 2)
Quarter: 2014Q2

REPORT INFORMATION
  Report Type: Spontaneous
  Country: US (occurrence: US)
  Receive Date: 20140319
  Receipt Date: 20140408
  Transmission Date: 20141212
  Serious: No
  Sender: FDA-Public Use
  Company Number: US-JNJFOC-20140304719

PATIENT
  Sex: Female
  Weight: 68.04 kg

DRUGS (4)
  1. DURAGESIC [Suspect]
     Indication: NEUROPATHY PERIPHERAL
     Route: 062
     Dates: start: 2013
  2. NORCO [Concomitant]
     Indication: BREAKTHROUGH PAIN
     Route: 048
  3. LYRICA [Concomitant]
     Indication: NEUROPATHY PERIPHERAL
     Route: 048
  4. LIPITOR [Concomitant]
     Indication: BLOOD CHOLESTEROL
     Route: 048
     Dates: start: 2014

REACTIONS (5)
  - Therapeutic response decreased [Unknown]
  - Product quality issue [Unknown]
  - Poor quality drug administered [Unknown]
  - Product quality issue [Unknown]
  - Application site perspiration [Not Recovered/Not Resolved]
